FAERS Safety Report 9337517 (Version 1)
Quarter: 2013Q2

REPORT INFORMATION
  Report Type: Spontaneous
  Country: AU (occurrence: AU)
  Receive Date: 20130607
  Receipt Date: 20130607
  Transmission Date: 20140414
  Serious: Yes (Other)
  Sender: FDA-Public Use
  Company Number: AU-ABBOTT-13X-008-1101107-00

PATIENT
  Sex: Male

DRUGS (1)
  1. EPILIM [Suspect]
     Indication: MIGRAINE
     Route: 065

REACTIONS (3)
  - Convulsion [Unknown]
  - Tinnitus [Unknown]
  - Abnormal behaviour [Unknown]
